FAERS Safety Report 10476817 (Version 1)
Quarter: 2014Q3

REPORT INFORMATION
  Report Type: Spontaneous
  Country: US (occurrence: US)
  Receive Date: 20140926
  Receipt Date: 20140926
  Transmission Date: 20150326
  Serious: Yes (Other)
  Sender: FDA-Public Use
  Company Number: US-ROCHE-1462821

PATIENT
  Sex: Female

DRUGS (1)
  1. CLONAZEPAM. [Suspect]
     Active Substance: CLONAZEPAM
     Indication: PRODUCT USED FOR UNKNOWN INDICATION
     Route: 065

REACTIONS (7)
  - Anaphylactic reaction [Recovered/Resolved]
  - Convulsion [Unknown]
  - Lactose intolerance [Recovered/Resolved]
  - Urticaria [Unknown]
  - Pharyngeal oedema [Recovered/Resolved]
  - Diarrhoea [Unknown]
  - Anaphylactic shock [Recovered/Resolved]
